FAERS Safety Report 9665141 (Version 3)
Quarter: 2013Q4

REPORT INFORMATION
  Report Type: Report from Study
  Country: US (occurrence: US)
  Receive Date: 20131101
  Receipt Date: 20131218
  Transmission Date: 20140711
  Serious: Yes (Other)
  Sender: FDA-Public Use
  Company Number: US-BAXTER-2013BAX041075

PATIENT
  Age: 14 Year
  Sex: Male
  Weight: 50 kg

DRUGS (11)
  1. GAMMAGARD LIQUID [Suspect]
     Indication: HYPOGAMMAGLOBULINAEMIA
     Route: 042
     Dates: start: 20131004, end: 20131004
  2. GAMMAGARD LIQUID [Suspect]
     Indication: PAEDIATRIC AUTOIMMUNE NEUROPSYCHIATRIC DISORDERS ASSOCIATED WITH STREPTOCOCCAL INFECTION
     Dosage: 1.5 G/KG
     Route: 042
     Dates: start: 201012, end: 201012
  3. GAMMAGARD LIQUID [Suspect]
     Indication: OFF LABEL USE
     Dosage: 1.5 G/KG
     Route: 042
     Dates: start: 201208, end: 201208
  4. GAMMAGARD LIQUID [Suspect]
     Dosage: 1.5 G/KG
     Route: 042
     Dates: start: 201209, end: 201209
  5. GAMMAGARD LIQUID [Suspect]
     Route: 042
     Dates: start: 201304
  6. MULTIVITAMINS [Concomitant]
     Indication: PRODUCT USED FOR UNKNOWN INDICATION
     Route: 048
  7. VITAMIN B [Concomitant]
     Indication: PRODUCT USED FOR UNKNOWN INDICATION
     Route: 048
  8. MINOCYCLINE [Concomitant]
     Indication: PROPHYLAXIS
     Route: 048
  9. LORATADINE [Concomitant]
     Indication: PRODUCT USED FOR UNKNOWN INDICATION
     Route: 048
  10. IBUPROFEN [Concomitant]
     Indication: PREMEDICATION
     Route: 048
  11. BENADRYL [Concomitant]
     Indication: PREMEDICATION
     Route: 048

REACTIONS (2)
  - Sinusitis [Not Recovered/Not Resolved]
  - Migraine [Recovered/Resolved]
